FAERS Safety Report 23258516 (Version 2)
Quarter: 2023Q4

REPORT INFORMATION
  Report Type: Spontaneous
  Country: JP (occurrence: JP)
  Receive Date: 20231204
  Receipt Date: 20231228
  Transmission Date: 20240109
  Serious: Yes (Hospitalization, Other)
  Sender: FDA-Public Use
  Company Number: JP-GSKJP-JP2022JPN192955

PATIENT
  Age: 77 Year
  Sex: Male

DRUGS (5)
  1. BOTOX [Suspect]
     Active Substance: ONABOTULINUMTOXINA
     Indication: Muscle spasms
     Dosage: TIME INTERVAL: AS NECESSARY: 500 UNITS
     Route: 030
     Dates: start: 20221208, end: 20221208
  2. BOTOX [Suspect]
     Active Substance: ONABOTULINUMTOXINA
     Indication: Muscle spasms
     Dosage: TIME INTERVAL: AS NECESSARY: UNK
     Route: 030
     Dates: start: 20220421, end: 20220825
  3. BOTOX [Suspect]
     Active Substance: ONABOTULINUMTOXINA
     Indication: Muscle spasms
     Dosage: TIME INTERVAL: AS NECESSARY
     Route: 065
     Dates: start: 20180418, end: 20180418
  4. BOTOX [Suspect]
     Active Substance: ONABOTULINUMTOXINA
     Indication: Muscle spasms
     Dosage: TIME INTERVAL: AS NECESSARY: UNK IU
     Route: 030
     Dates: start: 20150419, end: 20211108
  5. XEOMIN [Concomitant]
     Active Substance: INCOBOTULINUMTOXINA
     Indication: Muscle spasms
     Dosage: UNK

REACTIONS (4)
  - Hemiplegia [Not Recovered/Not Resolved]
  - Dysstasia [Recovered/Resolved]
  - Asthenia [Recovered/Resolved]
  - Muscular weakness [Recovered/Resolved]

NARRATIVE: CASE EVENT DATE: 20221209
